FAERS Safety Report 4954991-0 (Version None)
Quarter: 2006Q1

REPORT INFORMATION
  Report Type: 
  Country: None (occurrence: None)
  Receive Date: 20060322
  Receipt Date: 20060308
  Transmission Date: 20060701
  Serious: Yes (Other)
  Sender: FDA-Public Use
  Company Number: 2006033875

PATIENT
  Sex: Male
  Weight: 111.1313 kg

DRUGS (2)
  1. VIAGRA [Suspect]
     Indication: ERECTILE DYSFUNCTION
  2. CIALIS [Suspect]
     Indication: ILL-DEFINED DISORDER
     Dates: start: 20060101

REACTIONS (8)
  - BLINDNESS UNILATERAL [None]
  - ECONOMIC PROBLEM [None]
  - EMOTIONAL DISORDER [None]
  - OPTIC ISCHAEMIC NEUROPATHY [None]
  - OPTIC NERVE CUP/DISC RATIO DECREASED [None]
  - OPTIC NEURITIS [None]
  - PARTNER STRESS [None]
  - VISUAL FIELD DEFECT [None]
